FAERS Safety Report 7677943-9 (Version None)
Quarter: 2011Q3

REPORT INFORMATION
  Report Type: 
  Country: None (occurrence: None)
  Receive Date: 20110811
  Receipt Date: 20110801
  Transmission Date: 20111222
  Serious: Yes (Death, Other)
  Sender: FDA-Public Use
  Company Number: AU-ACTELION-A-CH2011-52268

PATIENT
  Sex: Male
  Weight: 112 kg

DRUGS (13)
  1. DIGOXIN [Concomitant]
  2. LIPITOR [Concomitant]
  3. SILDENAFIL CITRATE [Concomitant]
  4. ASPIRIN [Concomitant]
  5. WARFARIN [Concomitant]
  6. IMDUR [Concomitant]
  7. FUROSEMIDE [Concomitant]
  8. TRACLEER [Suspect]
     Indication: PULMONARY ARTERIAL HYPERTENSION
     Dosage: 125 MG, BID
     Route: 048
     Dates: end: 20110731
  9. SOTALOL HCL [Concomitant]
  10. TRACLEER [Suspect]
     Dosage: 62.5 MG, BID
     Route: 048
     Dates: start: 20100517
  11. PERINDOPRIL [Concomitant]
  12. VERAPAMIL [Concomitant]
  13. SPIRONOLACTONE [Concomitant]

REACTIONS (3)
  - SUDDEN DEATH [None]
  - LYMPHOMA [None]
  - CARDIAC ARREST [None]
